FAERS Safety Report 5817187-6 (Version None)
Quarter: 2008Q3

REPORT INFORMATION
  Report Type: 
  Country: None (occurrence: None)
  Receive Date: 20080722
  Receipt Date: 20080710
  Transmission Date: 20090109
  Serious: Yes (Death)
  Sender: FDA-Public Use
  Company Number: AR-BRISTOL-MYERS SQUIBB COMPANY-14257737

PATIENT
  Age: 79 Year
  Sex: Female

DRUGS (6)
  1. APIXABAN [Suspect]
     Indication: ATRIAL FIBRILLATION
     Route: 048
     Dates: start: 20080319
  2. WARFARIN SODIUM [Suspect]
     Indication: ATRIAL FIBRILLATION
     Route: 048
     Dates: start: 20080319
  3. PLACEBO [Suspect]
     Indication: ATRIAL FIBRILLATION
     Route: 048
     Dates: start: 20080319
  4. METOPROLOL SUCCINATE [Concomitant]
     Dates: start: 20070725
  5. DIGOXIN [Concomitant]
     Dates: start: 20071024
  6. RAMIPRIL [Concomitant]
     Dates: start: 20070725

REACTIONS (1)
  - SUDDEN DEATH [None]
